FAERS Safety Report 8254975-3 (Version None)
Quarter: 2012Q2

REPORT INFORMATION
  Report Type: 
  Country: None (occurrence: None)
  Receive Date: 20120403
  Receipt Date: 20120322
  Transmission Date: 20120825
  Serious: No
  Sender: FDA-Public Use
  Company Number: KR-JNJFOC-20120311719

PATIENT
  Age: 43 Year
  Sex: Male

DRUGS (3)
  1. DURAGESIC-100 [Suspect]
     Indication: BACK PAIN
     Route: 062
     Dates: start: 20120322
  2. ANALGESICS [Concomitant]
     Route: 065
  3. DURAGESIC-100 [Suspect]
     Route: 062
     Dates: start: 20120321

REACTIONS (5)
  - THERAPY REGIMEN CHANGED [None]
  - WRONG TECHNIQUE IN DRUG USAGE PROCESS [None]
  - DRUG PRESCRIBING ERROR [None]
  - DRUG INEFFECTIVE [None]
  - APPLICATION SITE PARAESTHESIA [None]
